FAERS Safety Report 23867486 (Version 1)
Quarter: 2024Q2

REPORT INFORMATION
  Report Type: Spontaneous
  Country: LT (occurrence: LT)
  Receive Date: 20240517
  Receipt Date: 20240517
  Transmission Date: 20240716
  Serious: Yes (Hospitalization)
  Sender: FDA-Public Use
  Company Number: None

PATIENT
  Age: 61 Year
  Sex: Female
  Weight: 60 kg

DRUGS (5)
  1. DOXORUBICIN HYDROCHLORIDE [Suspect]
     Active Substance: DOXORUBICIN HYDROCHLORIDE
     Indication: Ovarian cancer
     Dosage: (DOSAGE TEXT: UNKNOWN) AT AN UNSPECIFIED DOSE AND FREQUENCY
     Route: 042
     Dates: start: 20240219, end: 20240416
  2. ONDANSETRON [Suspect]
     Active Substance: ONDANSETRON
     Dosage: (DOSAGE TEXT: 8 MG PER DAY) AT AN UNSPECIFIED DOSE AND FREQUENCY
     Route: 042
     Dates: start: 20240416
  3. FOSAVANCE [Concomitant]
     Active Substance: ALENDRONATE SODIUM\CHOLECALCIFEROL
     Indication: Osteoporosis postmenopausal
     Dosage: (FOSAVANCE 70 MG/2800 IU TABLETS) (DOSAGE TEXT: 1 TAB PER DAY)
     Route: 048
     Dates: start: 20230605
  4. FILGRASTIM [Concomitant]
     Active Substance: FILGRASTIM
     Indication: Neoplasm
     Dosage: (ZARZIO 30 MU/0.5 ML SOLUTION FOR INJECTION OR INFUSION IN PRE-FILLED SYRINGE) (DOSAGE TEXT: UNKNOWN
     Route: 065
  5. DEXAMETHASONE [Concomitant]
     Active Substance: DEXAMETHASONE
     Dosage: (DEXAMETHASONE KRKA 4 MG/ML SOLUTION FOR INJECTION OR INFUSION) (DOSAGE TEXT: 8 MG PER DAY)
     Route: 042
     Dates: start: 20240416

REACTIONS (3)
  - Blister [Not Recovered/Not Resolved]
  - Erythema [Not Recovered/Not Resolved]
  - Rash erythematous [Not Recovered/Not Resolved]

NARRATIVE: CASE EVENT DATE: 20240423
